FAERS Safety Report 8840606 (Version 1)
Quarter: 2012Q4

REPORT INFORMATION
  Report Type: 
  Country: SK (occurrence: SK)
  Receive Date: 20121015
  Receipt Date: 20121015
  Transmission Date: 20130627
  Serious: Yes (Death, Hospitalization)
  Sender: FDA-Public Use
  Company Number: SK-TEVA-363865ISR

PATIENT
  Age: 87 Year
  Sex: Female
  Weight: 72 kg

DRUGS (8)
  1. TRANDOLAPRIL [Suspect]
     Indication: CARDIAC FAILURE
     Route: 048
  2. SPIRONOLACTONE [Suspect]
     Indication: CARDIAC FAILURE
     Route: 048
  3. INSUMAN RAPID [Concomitant]
  4. UROXAL [Concomitant]
  5. OMEPRAZOLE [Concomitant]
  6. ALLOPURINOL [Concomitant]
  7. AMLODIPINE [Concomitant]
  8. FUROSEMIDE [Concomitant]

REACTIONS (2)
  - Cardiopulmonary failure [Fatal]
  - Hyperkalaemia [Recovered/Resolved]
